FAERS Safety Report 7335944-4 (Version None)
Quarter: 2011Q1

REPORT INFORMATION
  Report Type: 
  Country: None (occurrence: None)
  Receive Date: 20110307
  Receipt Date: 20110301
  Transmission Date: 20110831
  Serious: Yes (Hospitalization)
  Sender: FDA-Public Use
  Company Number: GB-PFIZER INC-GB-WYE-G06166210

PATIENT
  Age: 79 Year
  Sex: Female

DRUGS (16)
  1. TRIMETHOPRIM [Concomitant]
     Indication: URINARY TRACT INFECTION
     Dosage: 200 MG, 2X/DAY
     Route: 048
  2. ZOPICLONE [Concomitant]
     Dosage: 3.75 MG, 1X/DAY
     Route: 048
  3. DIGOXIN [Concomitant]
     Dosage: 125 UG, 1X/DAY
     Route: 048
  4. ATORVASTATIN [Concomitant]
     Route: 048
  5. FUROSEMIDE [Concomitant]
     Dosage: 40 MG, 1X/DAY
     Route: 048
  6. OXYNORM [Concomitant]
     Indication: PAIN
     Route: 048
  7. SENNA [Concomitant]
     Dosage: 1 DF, 1X/DAY
     Route: 048
  8. SODIUM CHLORIDE [Concomitant]
     Dosage: 1 DF, 4X/DAY
     Route: 065
  9. IBUPROFEN [Suspect]
     Indication: PAIN
     Dosage: 400 MG 3 TIMES A DAY
     Route: 048
     Dates: start: 20091224, end: 20100418
  10. CITALOPRAM [Concomitant]
     Route: 048
  11. CODEINE [Concomitant]
     Route: 048
  12. VERAPAMIL HYDROCHLORIDE [Concomitant]
     Indication: ANGINA PECTORIS
     Dosage: 240 MG, 1X/DAY
     Route: 048
  13. MAGNESIUM HYDROXIDE [Concomitant]
     Dosage: 10 ML, 2X/DAY
     Route: 048
  14. GLYCERYL TRINITRATE [Concomitant]
     Dosage: 1 DF, AS NEEDED
     Route: 060
  15. HALOPERIDOL [Concomitant]
     Indication: HALLUCINATION
     Dosage: 1 G, 1X/DAY
     Route: 048
  16. WARFARIN [Concomitant]
     Indication: ATRIAL FIBRILLATION
     Route: 048

REACTIONS (3)
  - HAEMATEMESIS [None]
  - OESOPHAGEAL ULCER [None]
  - REFLUX OESOPHAGITIS [None]
